FAERS Safety Report 7148198-9 (Version None)
Quarter: 2010Q4

REPORT INFORMATION
  Report Type: 
  Country: None (occurrence: None)
  Receive Date: 20101209
  Receipt Date: 20101124
  Transmission Date: 20110411
  Serious: Yes (Other)
  Sender: FDA-Public Use
  Company Number: PHFR2010GB04607

PATIENT
  Sex: Female
  Weight: 55 kg

DRUGS (6)
  1. CLOZARIL [Suspect]
     Indication: SCHIZOAFFECTIVE DISORDER
     Dosage: 200 MG, BID
     Route: 048
     Dates: start: 20100617
  2. CLOZARIL [Interacting]
     Dosage: 250 MG MANE, 300 MG NOCTE
     Route: 048
  3. CLOZARIL [Interacting]
     Dosage: 250 MG, BID
     Route: 048
     Dates: end: 20101005
  4. CARBAMAZEPINE [Interacting]
     Indication: AFFECTIVE DISORDER
     Dosage: 400 MG, UNK
     Route: 048
     Dates: start: 20100906, end: 20101006
  5. CARBIMAZOLE [Concomitant]
     Indication: HYPERTHYROIDISM
     Dosage: 5 MG
     Route: 048
     Dates: start: 20090601, end: 20101124
  6. HYOSCINE HBR HYT [Concomitant]
     Indication: SALIVARY HYPERSECRETION
     Dosage: 300 MG
     Route: 048
     Dates: start: 20100628, end: 20101007

REACTIONS (10)
  - AGITATION [None]
  - ANTIPSYCHOTIC DRUG LEVEL BELOW THERAPEUTIC [None]
  - DRUG INTERACTION [None]
  - FEBRILE CONVULSION [None]
  - HIPPOCAMPAL SCLEROSIS [None]
  - MENTAL IMPAIRMENT [None]
  - PETIT MAL EPILEPSY [None]
  - RESTLESSNESS [None]
  - SUICIDAL IDEATION [None]
  - TREATMENT NONCOMPLIANCE [None]
